FAERS Safety Report 9689878 (Version 4)
Quarter: 2014Q2

REPORT INFORMATION
  Report Type: Spontaneous
  Country: US (occurrence: US)
  Receive Date: 20131115
  Receipt Date: 20140409
  Transmission Date: 20141212
  Serious: Yes (Other)
  Sender: FDA-Public Use
  Company Number: US-PFIZER INC-2013324298

PATIENT
  Age: 56 Year
  Sex: Female

DRUGS (1)
  1. LYRICA [Suspect]
     Indication: FIBROMYALGIA
     Dosage: UNK, 2X/DAY
     Route: 048
     Dates: start: 2012, end: 20131113

REACTIONS (7)
  - Fracture [Unknown]
  - Activities of daily living impaired [Unknown]
  - Suicidal ideation [Unknown]
  - Sinusitis [Unknown]
  - Cough [Unknown]
  - Malaise [Unknown]
  - Pain [Not Recovered/Not Resolved]
